FAERS Safety Report 4693890-9 (Version None)
Quarter: 2005Q2

REPORT INFORMATION
  Report Type: 
  Country: None (occurrence: None)
  Receive Date: 20050616
  Receipt Date: 20050607
  Transmission Date: 20051028
  Serious: Yes (Death, Hospitalization)
  Sender: FDA-Public Use
  Company Number: 2005086301

PATIENT
  Age: 64 Year
  Sex: Male

DRUGS (4)
  1. TAHOR (ATORVASTATIN) [Suspect]
     Indication: ILL-DEFINED DISORDER
     Dosage: 10 MG (1 IN 1 D)
  2. NSAID'S (NSAID'S) [Suspect]
     Indication: ILL-DEFINED DISORDER
     Dates: end: 20050101
  3. OMEPRAZOLE [Suspect]
     Indication: ILL-DEFINED DISORDER
     Dates: end: 20050101
  4. EFFERALGAN CODEINE 9CODEINE PHOSPHATE, PARACETAMOL) [Suspect]
     Indication: OSTEOARTHRITIS

REACTIONS (7)
  - BLOOD PRESSURE DECREASED [None]
  - GASTROENTERITIS [None]
  - IATROGENIC INJURY [None]
  - MALAISE [None]
  - RENAL DISORDER [None]
  - TORSADE DE POINTES [None]
  - VENTRICULAR FIBRILLATION [None]
